FAERS Safety Report 15097888 (Version 1)
Quarter: 2018Q3

REPORT INFORMATION
  Report Type: Spontaneous
  Country: US (occurrence: US)
  Receive Date: 20180702
  Receipt Date: 20180702
  Transmission Date: 20181010
  Serious: No
  Sender: FDA-Public Use
  Company Number: US-PFM-2018-04722

PATIENT

DRUGS (3)
  1. HEMANGEOL [Suspect]
     Active Substance: PROPRANOLOL HYDROCHLORIDE
     Dosage: 2.5 ML, BID (2/DAY) WITH FEEDING AS INSTRUCTED.
     Route: 048
     Dates: start: 20180330
  2. HEMANGEOL [Suspect]
     Active Substance: PROPRANOLOL HYDROCHLORIDE
     Dosage: 2 ML, BID (2/DAY) WITH FEEDING AS INSTRUCTED.
     Route: 048
  3. HEMANGEOL [Suspect]
     Active Substance: PROPRANOLOL HYDROCHLORIDE
     Indication: INFANTILE HAEMANGIOMA
     Dosage: 0.25 ML, BID (2/DAY)
     Route: 048
     Dates: start: 20180223

REACTIONS (4)
  - Increased viscosity of bronchial secretion [Recovered/Resolved]
  - Off label use [Unknown]
  - Drug titration error [Unknown]
  - Salivary hypersecretion [Recovered/Resolved]
